FAERS Safety Report 10039170 (Version 1)
Quarter: 2014Q1

REPORT INFORMATION
  Report Type: Spontaneous
  Country: US (occurrence: None)
  Receive Date: 20140306
  Receipt Date: 20140306
  Transmission Date: 20141002
  Serious: Yes (Other)
  Sender: FDA-Public Use
  Company Number: 163-21880-13073277

PATIENT
  Age: 62 Year
  Sex: Male
  Weight: 95.26 kg

DRUGS (5)
  1. REVLIMID (LENALIDOMIDE) (10 MILLIGRAM, CAPSULES) [Suspect]
     Indication: CHRONIC LYMPHOCYTIC LEUKAEMIA
     Dosage: 10 MG, 28 IN 28 D, PO
     Route: 048
     Dates: start: 201304, end: 201305
  2. ACYCLOVIR (ACICLOVIR) [Concomitant]
  3. BACTRIM DS (BACTRIM) [Concomitant]
  4. FLUCONAZOLE (FLUCONAZOLE) [Concomitant]
  5. ASA (ACETYLSALICYLIC ACID) [Concomitant]

REACTIONS (1)
  - Pulmonary thrombosis [None]
